FAERS Safety Report 6856095-9 (Version None)
Quarter: 2010Q3

REPORT INFORMATION
  Report Type: 
  Country: None (occurrence: None)
  Receive Date: 20100715
  Receipt Date: 20100715
  Transmission Date: 20110219
  Serious: Yes (Disabling)
  Sender: FDA-Public Use
  Company Number: None

PATIENT
  Sex: Female

DRUGS (1)
  1. SOMAVERT [Suspect]
     Indication: PITUITARY TUMOUR
     Dosage: 15MG DAILY SQ
     Route: 058
     Dates: start: 20081223, end: 20100714

REACTIONS (6)
  - BLOOD SODIUM DECREASED [None]
  - CONFUSIONAL STATE [None]
  - INSULIN-LIKE GROWTH FACTOR DECREASED [None]
  - OEDEMA PERIPHERAL [None]
  - OXYGEN SATURATION DECREASED [None]
  - PALLOR [None]
